FAERS Safety Report 21092841 (Version 1)
Quarter: 2022Q3

REPORT INFORMATION
  Report Type: Spontaneous
  Country: None (occurrence: CN)
  Receive Date: 20220718
  Receipt Date: 20220718
  Transmission Date: 20221026
  Serious: Yes (Hospitalization)
  Sender: FDA-Public Use
  Company Number: CN-Jiangsu Hengrui Medicine Co., Ltd.-2130961

PATIENT
  Age: 61 Year
  Weight: 69 kg

DRUGS (5)
  1. CYCLOPHOSPHAMIDE [Suspect]
     Active Substance: CYCLOPHOSPHAMIDE
     Indication: Diffuse large B-cell lymphoma
     Dates: start: 20211219, end: 20220412
  2. RITUXIMAB [Suspect]
     Active Substance: RITUXIMAB
     Route: 041
     Dates: start: 20211218, end: 20220411
  3. EPIRUBICIN [Suspect]
     Active Substance: EPIRUBICIN
     Route: 041
     Dates: start: 20211219, end: 20220412
  4. VINCRISTINE [Suspect]
     Active Substance: VINCRISTINE
     Dates: start: 20211219, end: 20220412
  5. PREDNISONE [Suspect]
     Active Substance: PREDNISONE
     Dates: start: 20211219, end: 20220416

REACTIONS (1)
  - Blindness [Unknown]
